FAERS Safety Report 5011473-8 (Version None)
Quarter: 2006Q2

REPORT INFORMATION
  Report Type: 
  Country: None (occurrence: None)
  Receive Date: 20060524
  Receipt Date: 20060517
  Transmission Date: 20061013
  Serious: Yes (Hospitalization)
  Sender: FDA-Public Use
  Company Number: 2005-BP-21848RO

PATIENT
  Age: 82 Year
  Sex: Female

DRUGS (3)
  1. METHOTREXATE [Suspect]
     Dosage: 10 MG PER WEEK, SC
     Route: 058
  2. PERINDOPRIL ERUMINE [Concomitant]
  3. FUROSEMIDE [Concomitant]

REACTIONS (3)
  - PANCYTOPENIA [None]
  - PNEUMONIA [None]
  - SEPSIS [None]
